FAERS Safety Report 14897543 (Version 1)
Quarter: 2018Q2

REPORT INFORMATION
  Report Type: Spontaneous
  Country: FR (occurrence: FR)
  Receive Date: 20180515
  Receipt Date: 20180515
  Transmission Date: 20180711
  Serious: Yes (Hospitalization)
  Sender: FDA-Public Use
  Company Number: FR-TEVA-2018-FR-893243

PATIENT
  Age: 71 Year
  Sex: Male
  Weight: 63.3 kg

DRUGS (8)
  1. VANCOMYCIN [Suspect]
     Active Substance: VANCOMYCIN
     Dosage: 1250 MILLIGRAM DAILY; START VANCOMYCIN ON 30/12 (2.5 G) STOP OF VANCOMYCIN 03/01 THEN RESUME ON 05/0
     Route: 041
     Dates: start: 20171230, end: 20180109
  2. FUROSEMIDE. [Concomitant]
     Active Substance: FUROSEMIDE
     Dosage: 40 MILLIGRAM DAILY; + FUROSEMIDE (500 MG/50ML) 0 TO 48G/D
     Route: 040
     Dates: start: 20180105
  3. CLONIDINE (CHLORHYDRATE DE) [Concomitant]
     Dosage: 48 ML DAILY;
     Route: 041
  4. INSULINE [Concomitant]
     Active Substance: INSULIN NOS
     Dosage: 43.2 ML DAILY;
     Route: 041
     Dates: start: 20171228
  5. MORPHINE [Concomitant]
     Active Substance: MORPHINE
     Dosage: 3 MILLIGRAM DAILY;
     Route: 040
     Dates: start: 20180106
  6. ALVITYL [Concomitant]
     Dosage: 1 DOSAGE FORMS DAILY;
     Route: 048
  7. LEVOTHYROXINE SODIQUE [Concomitant]
     Active Substance: LEVOTHYROXINE SODIUM
     Dosage: 50 MICROGRAM DAILY;
     Route: 048
     Dates: start: 20171228
  8. CEFEPIME [Suspect]
     Active Substance: CEFEPIME HYDROCHLORIDE
     Dosage: 2 GRAM DAILY;
     Route: 040
     Dates: start: 20180110, end: 20180119

REACTIONS (1)
  - Drug reaction with eosinophilia and systemic symptoms [Recovering/Resolving]

NARRATIVE: CASE EVENT DATE: 20180118
